FAERS Safety Report 9112563 (Version 1)
Quarter: 2013Q1

REPORT INFORMATION
  Report Type: Spontaneous
  Country: AU (occurrence: AU)
  Receive Date: 20130211
  Receipt Date: 20130211
  Transmission Date: 20140127
  Serious: Yes (Other)
  Sender: FDA-Public Use
  Company Number: AU-ROCHE-1189812

PATIENT
  Age: 64 Year
  Sex: Female

DRUGS (3)
  1. AVASTIN [Suspect]
     Indication: COLON NEOPLASM
     Route: 065
  2. XELODA [Suspect]
     Indication: COLON NEOPLASM
     Route: 065
  3. OXALIPLATIN [Concomitant]

REACTIONS (1)
  - Disease progression [Unknown]
